FAERS Safety Report 23367494 (Version 3)
Quarter: 2024Q1

REPORT INFORMATION
  Report Type: Report from Study
  Country: EG (occurrence: EG)
  Receive Date: 20240104
  Receipt Date: 20240118
  Transmission Date: 20240410
  Serious: Yes (Other)
  Sender: FDA-Public Use
  Company Number: EG-BIOGEN-2024BI01243459

PATIENT
  Age: 23 Year
  Sex: Female
  Weight: 88 kg

DRUGS (6)
  1. TYSABRI [Suspect]
     Active Substance: NATALIZUMAB
     Indication: Multiple sclerosis
     Dosage: 300MG/15ML IV
     Route: 050
     Dates: start: 202301
  2. TYSABRI [Suspect]
     Active Substance: NATALIZUMAB
     Route: 050
     Dates: start: 202212
  3. ALDOMET [Concomitant]
     Active Substance: METHYLDOPA
     Indication: Pre-eclampsia
     Route: 050
     Dates: start: 202308, end: 20231207
  4. OSTEOCARE [Concomitant]
     Active Substance: CALCIUM\CHOLECALCIFEROL\MAGNESIUM\ZINC
     Indication: Mineral supplementation
     Route: 050
     Dates: start: 202303, end: 202312
  5. Ferroglobin [Concomitant]
     Indication: Mineral supplementation
     Route: 050
     Dates: start: 202303, end: 202312
  6. MINERALS\VITAMINS [Concomitant]
     Active Substance: MINERALS\VITAMINS
     Indication: Supplementation therapy
     Route: 050
     Dates: start: 202303, end: 202312

REACTIONS (3)
  - Pre-eclampsia [Recovered/Resolved]
  - Caesarean section [Recovered/Resolved]
  - Maternal exposure during pregnancy [Recovered/Resolved]

NARRATIVE: CASE EVENT DATE: 20230301
